FAERS Safety Report 9220230 (Version 1)
Quarter: 2013Q1

REPORT INFORMATION
  Report Type: Spontaneous
  Country: US (occurrence: US)
  Receive Date: 20120830
  Receipt Date: 20120830
  Transmission Date: 20140127
  Serious: Yes (Other)
  Sender: FDA-Public Use
  Company Number: US012816

PATIENT
  Age: 4 Month
  Sex: Female

DRUGS (12)
  1. GABITRIL (TIAGABINE) [Suspect]
     Indication: CONVULSION
     Route: 048
     Dates: start: 20040217, end: 20040219
  2. ACTH [Concomitant]
  3. PROPANOLOL [Concomitant]
  4. LASIX [Concomitant]
  5. CALCIUM CARBONATE [Concomitant]
  6. ERGOCALCIFEROL [Concomitant]
  7. CARAFATE [Concomitant]
  8. ZANTAC [Concomitant]
  9. PHENOBARBITAL [Concomitant]
  10. SPIRONOLACTONE [Concomitant]
  11. MINOXIDIL [Concomitant]
  12. POTASSIUM [Concomitant]

REACTIONS (1)
  - Convulsion [None]
